FAERS Safety Report 6574553-1 (Version None)
Quarter: 2010Q1

REPORT INFORMATION
  Report Type: 
  Country: None (occurrence: None)
  Receive Date: 20100209
  Receipt Date: 20091013
  Transmission Date: 20100710
  Serious: No
  Sender: FDA-Public Use
  Company Number: A0806764A

PATIENT
  Age: 26 Year
  Sex: Female

DRUGS (2)
  1. PAXIL CR [Suspect]
     Indication: PANIC DISORDER
     Dosage: 12.5MG PER DAY
     Route: 048
     Dates: start: 20090909, end: 20090910
  2. KLONOPIN [Concomitant]

REACTIONS (2)
  - ABDOMINAL DISTENSION [None]
  - MALAISE [None]
